FAERS Safety Report 12441973 (Version 1)
Quarter: 2016Q2

REPORT INFORMATION
  Report Type: Spontaneous
  Country: US (occurrence: US)
  Receive Date: 20160607
  Receipt Date: 20160607
  Transmission Date: 20160815
  Serious: Yes (Hospitalization, Other)
  Sender: FDA-Public Use
  Company Number: US-ACTAVIS-2016-11602

PATIENT
  Age: 64 Year
  Sex: Female

DRUGS (4)
  1. VINCRISTINE (UNKNOWN) [Suspect]
     Active Substance: VINCRISTINE
     Indication: UTERINE CANCER
     Dosage: 1 ST AND 2ND CYCLE
     Route: 065
  2. ACTINOMYCIN D [Suspect]
     Active Substance: DACTINOMYCIN
     Indication: UTERINE CANCER
     Dosage: 1 ST AND 2ND CYCLE
     Route: 065
  3. ETOPOSIDE (WATSON LABORATORIES) [Suspect]
     Active Substance: ETOPOSIDE
     Indication: UTERINE CANCER
     Dosage: 1 ST AND 2ND CYCLE
     Route: 065
  4. CYCLOPHOSPHAMIDE. [Suspect]
     Active Substance: CYCLOPHOSPHAMIDE
     Indication: UTERINE CANCER
     Dosage: 1 ST AND 2ND CYCLE
     Route: 065

REACTIONS (5)
  - Disseminated cryptococcosis [Unknown]
  - Sepsis [Unknown]
  - Urinary tract infection [Unknown]
  - Klebsiella infection [Unknown]
  - Febrile neutropenia [Unknown]
